FAERS Safety Report 11433901 (Version 1)
Quarter: 2015Q3

REPORT INFORMATION
  Report Type: Spontaneous
  Country: CH (occurrence: CH)
  Receive Date: 20150831
  Receipt Date: 20150831
  Transmission Date: 20151125
  Serious: Yes (Other)
  Sender: FDA-Public Use
  Company Number: CH-ROCHE-1627339

PATIENT
  Sex: Male
  Weight: 62 kg

DRUGS (18)
  1. VALIUM [Suspect]
     Active Substance: DIAZEPAM
     Route: 048
     Dates: start: 20150501, end: 20150510
  2. OLANZAPIN [Suspect]
     Active Substance: OLANZAPINE
     Route: 048
     Dates: start: 20150501, end: 20150510
  3. GUTRON [Concomitant]
     Active Substance: MIDODRINE
     Route: 065
  4. NORFLOXACIN [Concomitant]
     Active Substance: NORFLOXACIN
     Route: 048
     Dates: start: 20150605, end: 20150621
  5. VALIUM [Suspect]
     Active Substance: DIAZEPAM
     Route: 048
     Dates: start: 20150511
  6. OLANZAPIN [Suspect]
     Active Substance: OLANZAPINE
     Route: 048
     Dates: start: 20150511, end: 20150512
  7. OLANZAPIN [Suspect]
     Active Substance: OLANZAPINE
     Route: 048
     Dates: start: 20150708, end: 20150722
  8. VALIUM [Suspect]
     Active Substance: DIAZEPAM
     Route: 048
     Dates: start: 20150513, end: 20150521
  9. SOLIAN [Suspect]
     Active Substance: AMISULPRIDE
     Indication: SCHIZOPHRENIA, PARANOID TYPE
     Route: 048
     Dates: start: 1970, end: 201504
  10. TAMSULOSIN [Concomitant]
     Active Substance: TAMSULOSIN
     Route: 048
     Dates: start: 20150422
  11. NORFLOXACIN [Concomitant]
     Active Substance: NORFLOXACIN
     Route: 048
     Dates: start: 20150708, end: 20150721
  12. VALIUM [Suspect]
     Active Substance: DIAZEPAM
     Indication: AGITATION
     Route: 048
  13. OLANZAPIN [Suspect]
     Active Substance: OLANZAPINE
     Indication: SCHIZOPHRENIA, PARANOID TYPE
     Route: 048
     Dates: start: 2015, end: 20150722
  14. TRANXILIUM [Concomitant]
     Active Substance: CLORAZEPATE DIPOTASSIUM
     Dosage: DOSING VARIED BETWEEN 25 TO 35 MG/?DAY
     Route: 048
     Dates: start: 20150521
  15. OLANZAPIN [Suspect]
     Active Substance: OLANZAPINE
     Route: 048
     Dates: start: 20150525, end: 20150707
  16. NORFLOXACIN [Concomitant]
     Active Substance: NORFLOXACIN
     Indication: PYELONEPHRITIS
     Route: 048
     Dates: start: 20150513, end: 20150517
  17. VALIUM [Suspect]
     Active Substance: DIAZEPAM
     Route: 048
     Dates: start: 20150512
  18. OLANZAPIN [Suspect]
     Active Substance: OLANZAPINE
     Route: 048
     Dates: start: 20150521, end: 20150524

REACTIONS (2)
  - Rhabdomyolysis [Recovered/Resolved]
  - Blood creatine phosphokinase increased [Recovered/Resolved]

NARRATIVE: CASE EVENT DATE: 2012
